FAERS Safety Report 23151765 (Version 1)
Quarter: 2023Q4

REPORT INFORMATION
  Report Type: Spontaneous
  Country: ES (occurrence: ES)
  Receive Date: 20231107
  Receipt Date: 20231107
  Transmission Date: 20240110
  Serious: Yes (Other)
  Sender: FDA-Public Use
  Company Number: ES-STRAGNORDP-2023000801

PATIENT
  Age: 69 Year
  Sex: Female

DRUGS (7)
  1. LENALIDOMIDE [Suspect]
     Active Substance: LENALIDOMIDE
     Indication: Plasma cell myeloma
     Dosage: FIRST LINE THERAPY CONSISTED OF 4 CYCLES?OF BORTEZOMIB, LEN AND DEXAMETHASONE (VRD),
  2. LENALIDOMIDE [Suspect]
     Active Substance: LENALIDOMIDE
     Dosage: 2 VRD CONSOLIDATION CYCLESOF BORTEZOMIB, LEN AND DEXAMETHASONE (VRD),
  3. LENALIDOMIDE [Suspect]
     Active Substance: LENALIDOMIDE
     Dosage: MAINTENANCE
     Route: 048
  4. BORTEZOMIB [Concomitant]
     Active Substance: BORTEZOMIB
     Indication: Plasma cell myeloma
     Dosage: 2 VRD CONSOLIDATION CYCLESOF BORTEZOMIB, LEN AND DEXAMETHASONE (VRD),
  5. BORTEZOMIB [Concomitant]
     Active Substance: BORTEZOMIB
     Dosage: FIRST LINE THERAPY CONSISTED OF 4 CYCLES?OF BORTEZOMIB, LEN AND DEXAMETHASONE (VRD),
  6. DEXAMETHASONE [Concomitant]
     Active Substance: DEXAMETHASONE
     Indication: Plasma cell myeloma
     Dosage: FIRST LINE THERAPY CONSISTED OF 4 CYCLES?OF BORTEZOMIB, LEN AND DEXAMETHASONE (VRD),
  7. DEXAMETHASONE [Concomitant]
     Active Substance: DEXAMETHASONE
     Dosage: 2 VRD CONSOLIDATION CYCLESOF BORTEZOMIB, LEN AND DEXAMETHASONE (VRD),

REACTIONS (1)
  - B-cell type acute leukaemia [Recovered/Resolved]
